FAERS Safety Report 13697321 (Version 1)
Quarter: 2017Q2

REPORT INFORMATION
  Report Type: Spontaneous
  Country: US (occurrence: US)
  Receive Date: 20170628
  Receipt Date: 20170628
  Transmission Date: 20170830
  Serious: No
  Sender: FDA-Public Use
  Company Number: US-TEVA-765694ACC

PATIENT
  Sex: Female

DRUGS (1)
  1. NITROFURANTOIN MACROCRYSTALS [Suspect]
     Active Substance: NITROFURANTOIN
     Indication: URINARY TRACT INFECTION
     Dates: start: 20170209

REACTIONS (4)
  - Burning sensation [Unknown]
  - Drug ineffective [Unknown]
  - Treatment noncompliance [Unknown]
  - Discomfort [Unknown]

NARRATIVE: CASE EVENT DATE: 20170209
